FAERS Safety Report 9350271 (Version 3)
Quarter: 2013Q3

REPORT INFORMATION
  Report Type: Spontaneous
  Country: US (occurrence: US)
  Receive Date: 20130617
  Receipt Date: 20130724
  Transmission Date: 20140515
  Serious: No
  Sender: FDA-Public Use
  Company Number: US-009507513-1306USA006043

PATIENT
  Age: 29 Year
  Sex: Female

DRUGS (3)
  1. NEXPLANON [Suspect]
     Indication: CONTRACEPTION
     Dosage: 68MG/SINGLE ROD
     Route: 059
     Dates: start: 20130606, end: 20130606
  2. CELEXA [Concomitant]
     Dosage: UNK
  3. METIPRANOLOL HYDROCHLORIDE [Concomitant]
     Dosage: UNK

REACTIONS (2)
  - Device expulsion [Recovered/Resolved]
  - Medical device complication [Recovered/Resolved]
